FAERS Safety Report 6016722-5 (Version None)
Quarter: 2008Q4

REPORT INFORMATION
  Report Type: 
  Country: None (occurrence: None)
  Receive Date: 20081222
  Receipt Date: 20081208
  Transmission Date: 20090506
  Serious: No
  Sender: FDA-Public Use
  Company Number: US-B.I. PHARMACEUTICALS,INC./RIDGEFIELD-2008-BP-18463BP

PATIENT
  Sex: Female

DRUGS (13)
  1. SPIRIVA [Suspect]
     Indication: BRONCHITIS CHRONIC
     Dosage: 18MCG
     Route: 055
     Dates: start: 20050101
  2. SPIRIVA [Suspect]
     Indication: EMPHYSEMA
  3. XOPENEX [Concomitant]
     Indication: CHRONIC OBSTRUCTIVE PULMONARY DISEASE
     Route: 055
  4. ADVAIR DISKUS 250/50 [Concomitant]
     Indication: CHRONIC OBSTRUCTIVE PULMONARY DISEASE
     Route: 055
  5. LASIX [Concomitant]
     Indication: CARDIAC DISORDER
     Route: 048
  6. CARDIA [Concomitant]
     Indication: CARDIAC DISORDER
     Route: 048
  7. DIGOXIN [Concomitant]
     Indication: CARDIAC DISORDER
     Route: 048
  8. BONAVIA [Concomitant]
     Indication: OSTEOPOROSIS
  9. K+ [Concomitant]
     Route: 048
  10. CA+ [Concomitant]
     Route: 048
  11. XANAX [Concomitant]
     Route: 048
  12. VALIUM [Concomitant]
     Route: 048
  13. CLONAZEPAM [Concomitant]
     Route: 048

REACTIONS (1)
  - BRONCHITIS [None]
